FAERS Safety Report 20769111 (Version 1)
Quarter: 2022Q2

REPORT INFORMATION
  Report Type: Spontaneous
  Country: US (occurrence: None)
  Receive Date: 20220429
  Receipt Date: 20220429
  Transmission Date: 20220721
  Serious: Yes (Hospitalization)
  Sender: FDA-Public Use
  Company Number: None

PATIENT
  Sex: Male
  Weight: 19.1 kg

DRUGS (2)
  1. CARBOPLATIN [Suspect]
     Active Substance: CARBOPLATIN
  2. VINCRISTINE SULFATE [Concomitant]

REACTIONS (3)
  - Hyponatraemia [None]
  - Pyrexia [None]
  - Seizure [None]

NARRATIVE: CASE EVENT DATE: 20220426
